FAERS Safety Report 5093907-6 (Version None)
Quarter: 2006Q3

REPORT INFORMATION
  Report Type: 
  Country: None (occurrence: None)
  Receive Date: 20060829
  Receipt Date: 20060829
  Transmission Date: 20061208
  Serious: Yes (Hospitalization)
  Sender: FDA-Public Use
  Company Number: None

PATIENT
  Age: 55 Year
  Sex: Male
  Weight: 73.8 kg

DRUGS (1)
  1. LISINOPRIL [Suspect]

REACTIONS (1)
  - RENAL IMPAIRMENT [None]
